FAERS Safety Report 18101638 (Version 1)
Quarter: 2020Q3

REPORT INFORMATION
  Report Type: Report from Study
  Country: EG (occurrence: EG)
  Receive Date: 20200801
  Receipt Date: 20200801
  Transmission Date: 20201103
  Serious: Yes (Death, Hospitalization)
  Sender: FDA-Public Use
  Company Number: NVSC2020EG212982

PATIENT
  Age: 59 Year
  Sex: Female

DRUGS (1)
  1. AFINITOR [Suspect]
     Active Substance: EVEROLIMUS
     Indication: METASTATIC RENAL CELL CARCINOMA
     Dosage: 2 DF, QD
     Route: 048
     Dates: start: 20200506

REACTIONS (17)
  - Blood magnesium decreased [Fatal]
  - Blood iron decreased [Fatal]
  - Vomiting [Fatal]
  - Blood glucose increased [Fatal]
  - Depression [Fatal]
  - CSF volume decreased [Fatal]
  - Death [Fatal]
  - Platelet count decreased [Fatal]
  - Confusional state [Fatal]
  - Blood sodium decreased [Fatal]
  - Dehydration [Fatal]
  - Diabetes mellitus [Fatal]
  - Decreased appetite [Fatal]
  - Protein total decreased [Fatal]
  - Plasma cells decreased [Fatal]
  - Renal failure [Fatal]
  - Anuria [Fatal]

NARRATIVE: CASE EVENT DATE: 20200520
